FAERS Safety Report 6457669-X (Version None)
Quarter: 2009Q4

REPORT INFORMATION
  Report Type: 
  Country: None (occurrence: None)
  Receive Date: 20091125
  Receipt Date: 20091116
  Transmission Date: 20100525
  Serious: Yes (Hospitalization)
  Sender: FDA-Public Use
  Company Number: FR-ABBOTT-09P-056-0582145-00

PATIENT
  Sex: Female

DRUGS (1)
  1. ENANTONE LP [Suspect]
     Indication: PRECOCIOUS PUBERTY
     Dates: start: 20080101, end: 20090101

REACTIONS (2)
  - CAROTID ARTERY DISSECTION [None]
  - ISCHAEMIC STROKE [None]
